FAERS Safety Report 5616297-6 (Version None)
Quarter: 2008Q1

REPORT INFORMATION
  Report Type: 
  Country: None (occurrence: None)
  Receive Date: 20080204
  Receipt Date: 20080103
  Transmission Date: 20080703
  Serious: Yes (Other)
  Sender: FDA-Public Use
  Company Number: 08C004

PATIENT
  Sex: Female

DRUGS (1)
  1. PURALUBE OPHTHALMIC OINTMENT [Suspect]
     Dosage: APPLY ONCE
     Route: 047
     Dates: start: 20080102

REACTIONS (1)
  - OCULAR HYPERAEMIA [None]
